FAERS Safety Report 19241128 (Version 1)
Quarter: 2021Q2

REPORT INFORMATION
  Report Type: Spontaneous
  Country: US (occurrence: US)
  Receive Date: 20210510
  Receipt Date: 20210510
  Transmission Date: 20210717
  Serious: No
  Sender: FDA-Public Use
  Company Number: None

PATIENT
  Age: 74 Year
  Sex: Male
  Weight: 107.05 kg

DRUGS (1)
  1. LORAZEPAM (LORAZEPAM 2MG/ML INJ) [Suspect]
     Active Substance: LORAZEPAM
     Indication: ANXIETY
     Route: 042
     Dates: start: 20210404

REACTIONS (1)
  - Confusional state [None]

NARRATIVE: CASE EVENT DATE: 20210404
